FAERS Safety Report 9425073 (Version 2)
Quarter: 2013Q4

REPORT INFORMATION
  Report Type: Spontaneous
  Country: IE (occurrence: IE)
  Receive Date: 20130729
  Receipt Date: 20131018
  Transmission Date: 20140711
  Serious: Yes (Disabling)
  Sender: FDA-Public Use
  Company Number: IE-JNJFOC-20130608442

PATIENT
  Age: 21 Year
  Sex: Male

DRUGS (5)
  1. XEPLION [Suspect]
     Indication: SCHIZOPHRENIA, PARANOID TYPE
     Route: 030
     Dates: start: 20120307, end: 20130704
  2. AGOMELATINE [Concomitant]
     Indication: DEPRESSION
     Route: 048
     Dates: start: 20121204
  3. ZIMOVANE [Concomitant]
     Indication: INSOMNIA
     Dosage: NOCTE
     Route: 048
     Dates: start: 20121204
  4. ESCITALOPRAM [Concomitant]
     Indication: PANIC DISORDER
     Dosage: MANE
     Route: 048
     Dates: start: 20130409
  5. ESCITALOPRAM [Concomitant]
     Indication: DEPRESSION
     Dosage: MANE
     Route: 048
     Dates: start: 20130409

REACTIONS (4)
  - Muscular weakness [Recovered/Resolved]
  - Pain in extremity [Recovered/Resolved]
  - Musculoskeletal stiffness [Recovered/Resolved]
  - Movement disorder [Recovered/Resolved]
